FAERS Safety Report 6837278-0 (Version None)
Quarter: 2010Q3

REPORT INFORMATION
  Report Type: 
  Country: None (occurrence: None)
  Receive Date: 20100707
  Receipt Date: 20100630
  Transmission Date: 20110219
  Serious: Yes (Other)
  Sender: FDA-Public Use
  Company Number: DSA_43400_2010

PATIENT
  Sex: Female

DRUGS (8)
  1. TILDIEM (TILDIEM - DILTIAZEM HYDROCHLORIDE) (90 MG, 120 MG) (NOT SPECI [Suspect]
     Indication: HYPERTENSION
     Dosage: 90 MG BID, 120 MG BID
     Dates: start: 20090804
  2. TILDIEM (TILDIEM - DILTIAZEM HYDROCHLORIDE) (90 MG, 120 MG) (NOT SPECI [Suspect]
     Indication: HYPERTENSION
     Dosage: 90 MG BID, 120 MG BID
     Dates: start: 20100201
  3. ANADIN EXTRA [Concomitant]
  4. LANSOPRAZOLE [Concomitant]
  5. OXAZEPAM [Concomitant]
  6. FLUTICASONE PROPIONATE [Concomitant]
  7. BRICANYL [Concomitant]
  8. BENDROFLUMETHIAZINE [Concomitant]

REACTIONS (10)
  - AMNESIA [None]
  - ARTHRALGIA [None]
  - BLOOD PRESSURE DECREASED [None]
  - BLOOD PRESSURE INCREASED [None]
  - CONDITION AGGRAVATED [None]
  - DRUG INEFFECTIVE [None]
  - LOWER RESPIRATORY TRACT INFECTION [None]
  - RAYNAUD'S PHENOMENON [None]
  - SINUSITIS [None]
  - STRESS [None]
